FAERS Safety Report 5651252-1 (Version None)
Quarter: 2008Q1

REPORT INFORMATION
  Report Type: 
  Country: None (occurrence: None)
  Receive Date: 20080131
  Receipt Date: 20080104
  Transmission Date: 20080703
  Serious: No
  Sender: FDA-Public Use
  Company Number: US200710003233

PATIENT
  Age: 51 Year
  Sex: Female

DRUGS (6)
  1. BYETTA [Suspect]
     Indication: TYPE 2 DIABETES MELLITUS
     Dosage: 5 UG, 2/D, SUBCUTANEOUS ; 10 UG, 2/D, SUBCUTANEOUS
     Route: 058
     Dates: start: 20060101
  2. AMARYL [Concomitant]
  3. GLUCOPHAGE /USA/ (METFORMIN HYDROCHLORIDE) [Concomitant]
  4. AVANDIA [Concomitant]
  5. ACTOS /USA/ (PIOGLITAZONE HYDROCHLORIDE) [Concomitant]
  6. GLUCOTROL [Concomitant]

REACTIONS (12)
  - CHEST PAIN [None]
  - DIARRHOEA [None]
  - DYSPEPSIA [None]
  - ENDODONTIC PROCEDURE [None]
  - HAEMORRHOIDS [None]
  - HYPERHIDROSIS [None]
  - NAUSEA [None]
  - OSTEOMYELITIS [None]
  - SENSITIVITY OF TEETH [None]
  - SWELLING [None]
  - VISION BLURRED [None]
  - WEIGHT DECREASED [None]
